FAERS Safety Report 15554645 (Version 2)
Quarter: 2018Q4

REPORT INFORMATION
  Report Type: Report from Study
  Country: PL (occurrence: PL)
  Receive Date: 20181026
  Receipt Date: 20181116
  Transmission Date: 20190205
  Serious: Yes (Other)
  Sender: FDA-Public Use
  Company Number: PL-HORIZON-PRE-0477-2018

PATIENT
  Sex: Female

DRUGS (6)
  1. SPIRAMYCIN [Suspect]
     Active Substance: SPIRAMYCIN
     Indication: EYE INFECTION TOXOPLASMAL
     Dosage: 3 M IU TID FOR 10 DAYS
     Route: 048
  2. PREDNISONE. [Suspect]
     Active Substance: PREDNISONE
     Indication: EYE INFECTION TOXOPLASMAL
     Dosage: INITAL DOSE 40 MG IN THE MORNING
     Route: 048
  3. RANITIDINE. [Concomitant]
     Active Substance: RANITIDINE
     Indication: PROPHYLAXIS
     Route: 048
  4. AZITHROMYCIN ANHYDROUS. [Suspect]
     Active Substance: AZITHROMYCIN ANHYDROUS
     Indication: EYE INFECTION TOXOPLASMAL
     Dosage: 500 MG QD
     Route: 048
  5. PYRIMETHAMINE/SULFADOXINE [Suspect]
     Active Substance: PYRIMETHAMINE\SULFADOXINE
     Indication: EYE INFECTION TOXOPLASMAL
     Dosage: 25 MG/500 MG BID FOR FIRST 2 DAYS; QD ON DAYS 3-21
     Route: 048
  6. OMEPRAZOLE. [Concomitant]
     Active Substance: OMEPRAZOLE
     Indication: PROPHYLAXIS
     Route: 048

REACTIONS (1)
  - Abdominal pain [Unknown]
